FAERS Safety Report 8579014-6 (Version None)
Quarter: 2012Q3

REPORT INFORMATION
  Report Type: 
  Country: None (occurrence: None)
  Receive Date: 20120808
  Receipt Date: 20120730
  Transmission Date: 20120928
  Serious: Yes (Hospitalization)
  Sender: FDA-Public Use
  Company Number: US-JNJFOC-20120614670

PATIENT
  Sex: Male
  Weight: 35 kg

DRUGS (9)
  1. CIMZIA [Concomitant]
     Dates: start: 20100720
  2. TYLENOL [Concomitant]
  3. HUMIRA [Concomitant]
     Dates: end: 20100720
  4. REMICADE [Suspect]
     Route: 042
     Dates: start: 20090701
  5. CIMZIA [Concomitant]
  6. HUMIRA [Concomitant]
     Dates: start: 20100420
  7. PROBIOTICS [Concomitant]
  8. CHOLECALCIFEROL [Concomitant]
  9. REMICADE [Suspect]
     Indication: INFLAMMATORY BOWEL DISEASE
     Route: 042
     Dates: start: 20040826

REACTIONS (4)
  - DEHYDRATION [None]
  - CLOSTRIDIAL INFECTION [None]
  - HYPONATRAEMIA [None]
  - AEROMONAS TEST POSITIVE [None]
